FAERS Safety Report 4839130-9 (Version None)
Quarter: 2005Q4

REPORT INFORMATION
  Report Type: 
  Country: None (occurrence: None)
  Receive Date: 20051128
  Receipt Date: 20051128
  Transmission Date: 20060501
  Serious: No
  Sender: FDA-Public Use
  Company Number: None

PATIENT
  Age: 49 Year
  Sex: Female

DRUGS (2)
  1. FLOVENT HFA [Suspect]
     Indication: ASTHMA
     Dosage: 220 MCG TWO BID INH
     Route: 055
     Dates: start: 20050524
  2. FLOVENT HFA [Suspect]
     Indication: ASTHMA
     Dosage: 220 MCG TWO BID INH
     Route: 055
     Dates: start: 20051118

REACTIONS (2)
  - COUGH [None]
  - DRUG INTOLERANCE [None]
